FAERS Safety Report 18382502 (Version 1)
Quarter: 2020Q4

REPORT INFORMATION
  Report Type: Spontaneous
  Country: US (occurrence: US)
  Receive Date: 20201014
  Receipt Date: 20201014
  Transmission Date: 20210114
  Serious: Yes (Hospitalization)
  Sender: FDA-Public Use
  Company Number: None

PATIENT
  Age: 79 Year
  Sex: Male
  Weight: 76.77 kg

DRUGS (15)
  1. ALLOPURINOL. [Concomitant]
     Active Substance: ALLOPURINOL
  2. SIMVASTATIN. [Concomitant]
     Active Substance: SIMVASTATIN
  3. HEPARIN LOCK FLUSH [Concomitant]
     Active Substance: HEPARIN SODIUM
  4. BIFIDOBACTERIUM [Concomitant]
     Active Substance: BIFIDOBACTERIUM LONGUM
  5. SODIUM CHLORIDE FLUSH [Concomitant]
     Active Substance: SODIUM CHLORIDE
  6. ONDANSETRON [Concomitant]
     Active Substance: ONDANSETRON
  7. ERTAPENEM. [Concomitant]
     Active Substance: ERTAPENEM SODIUM
  8. MULTIVITAMINS [Concomitant]
     Active Substance: VITAMINS
  9. OXALIPLATIN. [Concomitant]
     Active Substance: OXALIPLATIN
  10. DEXTROSE 5% ELECTROLYTES [Concomitant]
  11. CAPECITABINE. [Suspect]
     Active Substance: CAPECITABINE
     Indication: COLON CANCER
     Route: 048
     Dates: start: 20200817, end: 20201004
  12. SPIRONONLACTONE [Concomitant]
     Active Substance: SPIRONOLACTONE
  13. TAMSULOSIN [Concomitant]
     Active Substance: TAMSULOSIN
  14. PREDNISONE. [Concomitant]
     Active Substance: PREDNISONE
  15. DEXAMETHASONE. [Concomitant]
     Active Substance: DEXAMETHASONE

REACTIONS (6)
  - Pain [None]
  - Dehydration [None]
  - Eating disorder [None]
  - Colitis [None]
  - Diarrhoea [None]
  - Hiccups [None]

NARRATIVE: CASE EVENT DATE: 20201014
